FAERS Safety Report 19176059 (Version 8)
Quarter: 2021Q3

REPORT INFORMATION
  Report Type: Report from Study
  Country: ZA (occurrence: ZA)
  Receive Date: 20210423
  Receipt Date: 20210929
  Transmission Date: 20211014
  Serious: Yes (Hospitalization)
  Sender: FDA-Public Use
  Company Number: ZA-CELGENEUS-ZAF-20210404812

PATIENT
  Age: 46 Year
  Sex: Male
  Weight: 140 kg

DRUGS (5)
  1. OZANIMOD. [Suspect]
     Active Substance: OZANIMOD
     Dosage: 1 MILLIGRAM
     Route: 048
     Dates: end: 20210219
  2. OZANIMOD. [Suspect]
     Active Substance: OZANIMOD
     Indication: RELAPSING MULTIPLE SCLEROSIS
     Dosage: 1 MILLIGRAM
     Route: 048
     Dates: start: 20161207, end: 20201203
  3. URBANOL [Concomitant]
     Active Substance: CLOBAZAM
     Indication: ANXIETY
     Route: 048
     Dates: start: 20180305
  4. NEUROBION [Concomitant]
     Active Substance: CYANOCOBALAMIN\PYRIDOXINE\THIAMINE
     Indication: FATIGUE
     Dosage: 1 TABLET
     Route: 048
     Dates: start: 20200812
  5. PURBAC [Concomitant]
     Active Substance: SULFAMETHOXAZOLE\TRIMETHOPRIM
     Indication: ACNE
     Dosage: 80/400 MILLIGRAM
     Route: 048
     Dates: start: 201307

REACTIONS (1)
  - Arrhythmia [Recovered/Resolved]

NARRATIVE: CASE EVENT DATE: 20210216
